FAERS Safety Report 11358720 (Version 1)
Quarter: 2015Q3

REPORT INFORMATION
  Report Type: Spontaneous
  Country: NZ (occurrence: None)
  Receive Date: 20150806
  Receipt Date: 20150806
  Transmission Date: 20151125
  Serious: Yes (Other)
  Sender: FDA-Public Use
  Company Number: NZ-2015VAL000503

PATIENT
  Age: 65 Year
  Sex: Male

DRUGS (4)
  1. METOPROLOL TARTRATE (METOPROLOL TARTRATE) UNKNOWN [Suspect]
     Active Substance: METOPROLOL TARTRATE
     Indication: PRODUCT USED FOR UNKNOWN INDICATION
  2. ATORVASTATIN [Suspect]
     Active Substance: ATORVASTATIN
     Indication: PRODUCT USED FOR UNKNOWN INDICATION
  3. OMEPRAZOLE (OMEPRAZOLE) [Suspect]
     Active Substance: OMEPRAZOLE
     Indication: PRODUCT USED FOR UNKNOWN INDICATION
  4. METFORMIN [Suspect]
     Active Substance: METFORMIN HYDROCHLORIDE
     Indication: PRODUCT USED FOR UNKNOWN INDICATION

REACTIONS (13)
  - Anaemia [None]
  - Renal cyst [None]
  - Metastases to the mediastinum [None]
  - Metastases to skin [None]
  - Metastases to lung [None]
  - Lymphadenopathy [None]
  - Occult blood positive [None]
  - Metastases to peritoneum [None]
  - Thyroid gland scan abnormal [None]
  - Pancreatic disorder [None]
  - Metastatic malignant melanoma [None]
  - Metastases to bone [None]
  - Metastases to muscle [None]

NARRATIVE: CASE EVENT DATE: 20150616
